FAERS Safety Report 4526140-4 (Version None)
Quarter: 2004Q4

REPORT INFORMATION
  Report Type: 
  Country: None (occurrence: None)
  Receive Date: 20041213
  Receipt Date: 20041213
  Transmission Date: 20050328
  Serious: Yes (Hospitalization, Disabling, Other)
  Sender: FDA-Public Use
  Company Number: None

PATIENT
  Age: 43 Year
  Sex: Female
  Weight: 74.8435 kg

DRUGS (6)
  1. CORICIDIN D SRT [Suspect]
     Indication: DRUG USE FOR UNKNOWN INDICATION
     Dosage: 2-3 PILLS QD
     Dates: start: 19970315, end: 19970322
  2. AFRIN [Suspect]
     Indication: DRUG USE FOR UNKNOWN INDICATION
     Dosage: NAS AER SPRAY
     Route: 045
  3. NICOTINE [Concomitant]
  4. TENORMIN [Concomitant]
  5. ACTIFED [Concomitant]
  6. XANAX [Concomitant]

REACTIONS (12)
  - ALCOHOL USE [None]
  - ANXIETY [None]
  - ARTERIAL SPASM [None]
  - CEREBROVASCULAR ACCIDENT [None]
  - DEPRESSION [None]
  - DIZZINESS [None]
  - HEMIPARESIS [None]
  - INTRACRANIAL ANEURYSM [None]
  - POST PROCEDURAL COMPLICATION [None]
  - SUBARACHNOID HAEMORRHAGE [None]
  - VERTIGO [None]
  - VESTIBULAR DISORDER [None]
